FAERS Safety Report 5170566-5 (Version None)
Quarter: 2006Q4

REPORT INFORMATION
  Report Type: 
  Country: None (occurrence: None)
  Receive Date: 20061204
  Receipt Date: 20060407
  Transmission Date: 20070319
  Serious: No
  Sender: FDA-Public Use
  Company Number: 2006-140312-NL

PATIENT
  Age: 34 Year
  Sex: Female

DRUGS (2)
  1. MIRTAZAPINE [Suspect]
     Indication: DEPRESSION
     Dosage: 45 MG QD ORAL
     Route: 048
     Dates: start: 20050101
  2. ZOPICLONE [Concomitant]

REACTIONS (3)
  - BLOOD PROLACTIN INCREASED [None]
  - HEADACHE [None]
  - MALAISE [None]
